FAERS Safety Report 17608403 (Version 2)
Quarter: 2020Q2

REPORT INFORMATION
  Report Type: Spontaneous
  Country: BR (occurrence: BR)
  Receive Date: 20200331
  Receipt Date: 20200602
  Transmission Date: 20200713
  Serious: Yes (Hospitalization, Other)
  Sender: FDA-Public Use
  Company Number: BR-BAXTER-2020BAX006447

PATIENT
  Age: 54 Year
  Sex: Female
  Weight: 62.5 kg

DRUGS (15)
  1. GENUXAL [Suspect]
     Active Substance: CYCLOPHOSPHAMIDE
     Indication: INVASIVE DUCTAL BREAST CARCINOMA
     Dosage: AC PROTOCOL, FIRST CYCLE, GENUXAL + 0.9% PHYSIOLOGICAL SERUM
     Route: 065
     Dates: start: 20191031, end: 20191031
  2. FAULDOXO [Suspect]
     Active Substance: DOXORUBICIN HYDROCHLORIDE
     Indication: INVASIVE DUCTAL BREAST CARCINOMA
     Dosage: AC PROTOCOL, FIRST CYCLE, FAULDOXO + 5% DEXTROSE
     Route: 065
     Dates: start: 20191031, end: 20191031
  3. CLORETO DE S?DIO - BAXTER [Suspect]
     Active Substance: SODIUM CHLORIDE
     Dosage: AC PROTOCOL, SECOND AND THIRD CYCLE, GENUXAL + 0.9% PHYSIOLOGICAL SERUM
     Route: 065
  4. PALONOSETRON. [Concomitant]
     Active Substance: PALONOSETRON HYDROCHLORIDE
     Indication: PREMEDICATION
     Route: 065
  5. NEULASTIM [Suspect]
     Active Substance: PEGFILGRASTIM
     Indication: PRODUCT USED FOR UNKNOWN INDICATION
     Dosage: DAY 2 OF FOURTH CYCLE (C4D2)
     Route: 065
     Dates: start: 20200114, end: 20200114
  6. GENUXAL [Suspect]
     Active Substance: CYCLOPHOSPHAMIDE
     Dosage: AC PROTOCOL, SECOND AND THIRD CYCLE, GENUXAL + 0.9% PHYSIOLOGICAL SERUM
     Route: 065
  7. GENUXAL [Suspect]
     Active Substance: CYCLOPHOSPHAMIDE
     Dosage: AC PROTOCOL, D 1 OF 4TH CYCLE (C4D1), GENUXAL + 0.9% PHYSIOLOGICAL SERUM (INFUSION TIME 30 MINUTES)
     Route: 065
     Dates: start: 20200113, end: 20200113
  8. CLORETO DE S?DIO - BAXTER [Suspect]
     Active Substance: SODIUM CHLORIDE
     Indication: MEDICATION DILUTION
     Dosage: AC PROTOCOL, FIRST CYCLE, GENUXAL + 0.9% PHYSIOLOGICAL SERUM
     Route: 065
     Dates: start: 20191031, end: 20191031
  9. CLORETO DE S?DIO - BAXTER [Suspect]
     Active Substance: SODIUM CHLORIDE
     Dosage: AC PROTOCOL, D 1 OF 4TH CYCLE (C4D1), GENUXAL + 0.9% PHYSIOLOGICAL SERUM (INFUSION TIME 30 MINUTES)
     Route: 065
     Dates: start: 20200113, end: 20200113
  10. GLUCOSE [Suspect]
     Active Substance: DEXTROSE
     Dosage: AC PROTOCOL, DAY 1 OF THE FOURTH CYCLE (C4D1), FAULDOXO + 5% DEXTROSE (INFUSION TIME 15 MINUTES)
     Route: 065
     Dates: start: 20200113, end: 20200113
  11. FAULDOXO [Suspect]
     Active Substance: DOXORUBICIN HYDROCHLORIDE
     Dosage: AC PROTOCOL, SECOND AND THIRD CYCLE, FAULDOXO + 5% DEXTROSE
     Route: 065
  12. FAULDOXO [Suspect]
     Active Substance: DOXORUBICIN HYDROCHLORIDE
     Dosage: AC PROTOCOL, DAY 1 OF THE FOURTH CYCLE (C4D1), FAULDOXO + 5% DEXTROSE (INFUSION TIME 15 MINUTES)
     Route: 065
     Dates: start: 20200113, end: 20200113
  13. GLUCOSE [Suspect]
     Active Substance: DEXTROSE
     Indication: MEDICATION DILUTION
     Dosage: AC PROTOCOL, FIRST CYCLE, FAULDOXO + 5% DEXTROSE
     Route: 065
     Dates: start: 20191031, end: 20191031
  14. GLUCOSE [Suspect]
     Active Substance: DEXTROSE
     Dosage: AC PROTOCOL, SECOND AND THIRD CYCLE, FAULDOXO + 5% DEXTROSE
     Route: 065
  15. DEXAMETHASONE. [Concomitant]
     Active Substance: DEXAMETHASONE
     Indication: PREMEDICATION
     Route: 065

REACTIONS (9)
  - Pyrexia [Unknown]
  - Hypoxia [Recovering/Resolving]
  - Productive cough [Recovered/Resolved]
  - Febrile neutropenia [Recovered/Resolved]
  - Productive cough [Recovered/Resolved]
  - Hypotension [Recovered/Resolved]
  - Hypotension [Recovered/Resolved]
  - Condition aggravated [Recovering/Resolving]
  - Dyspnoea [Recovering/Resolving]

NARRATIVE: CASE EVENT DATE: 20191222
